FAERS Safety Report 8537456-9 (Version None)
Quarter: 2012Q3

REPORT INFORMATION
  Report Type: 
  Country: None (occurrence: None)
  Receive Date: 20120725
  Receipt Date: 20120716
  Transmission Date: 20120928
  Serious: Yes (Hospitalization, Other)
  Sender: FDA-Public Use
  Company Number: US-009507513-1109USA00860

PATIENT

DRUGS (6)
  1. FOSAMAX [Suspect]
     Indication: OSTEOPENIA
     Dosage: 70 MG, QW
     Route: 048
     Dates: start: 20061208, end: 20100106
  2. CALCIUM (UNSPECIFIED) [Concomitant]
     Dosage: 600 MG, UNK
  3. FOSAMAX [Suspect]
     Route: 048
     Dates: start: 20081101, end: 20100420
  4. MK-9278 [Concomitant]
  5. PAXIL [Concomitant]
     Indication: ANXIETY
     Dates: start: 20010101
  6. FOSAMAX [Suspect]
     Indication: OSTEOPOROSIS
     Dosage: 70 MG, QW
     Route: 048
     Dates: start: 20010430, end: 20060601

REACTIONS (31)
  - FEMUR FRACTURE [None]
  - VIRAL INFECTION [None]
  - DRUG HYPERSENSITIVITY [None]
  - INSULINOMA [None]
  - LIMB INJURY [None]
  - LOW TURNOVER OSTEOPATHY [None]
  - PAIN IN EXTREMITY [None]
  - UPPER RESPIRATORY TRACT INFECTION [None]
  - DIVERTICULITIS [None]
  - ANXIETY [None]
  - ABDOMINAL DISCOMFORT [None]
  - CEREBROVASCULAR ACCIDENT [None]
  - HEPATIC STEATOSIS [None]
  - GASTROOESOPHAGEAL REFLUX DISEASE [None]
  - HAEMORRHOIDS [None]
  - VITAMIN D DEFICIENCY [None]
  - CATARACT [None]
  - MACULAR FIBROSIS [None]
  - FATIGUE [None]
  - DIVERTICULUM [None]
  - PANCREATITIS [None]
  - DEPRESSION [None]
  - HYPERCHOLESTEROLAEMIA [None]
  - NEPHROLITHIASIS [None]
  - ANAEMIA [None]
  - FRACTURE DELAYED UNION [None]
  - ANAEMIA POSTOPERATIVE [None]
  - URINARY TRACT INFECTION [None]
  - ASTIGMATISM [None]
  - REFRACTION DISORDER [None]
  - VITREOUS DETACHMENT [None]
